FAERS Safety Report 18510945 (Version 1)
Quarter: 2020Q4

REPORT INFORMATION
  Report Type: Report from Study
  Country: CA (occurrence: CA)
  Receive Date: 20201117
  Receipt Date: 20201117
  Transmission Date: 20210114
  Serious: Yes (Other)
  Sender: FDA-Public Use
  Company Number: CA-JNJFOC-20200337553

PATIENT
  Age: 52 Year
  Sex: Female
  Weight: 113 kg

DRUGS (2)
  1. REMICADE [Suspect]
     Active Substance: INFLIXIMAB
     Indication: CROHN^S DISEASE
     Route: 042
     Dates: start: 20130810
  2. REMICADE [Suspect]
     Active Substance: INFLIXIMAB
     Dosage: 1100 MG
     Route: 042
     Dates: start: 20171110

REACTIONS (2)
  - Nasopharyngitis [Unknown]
  - Lower respiratory tract infection viral [Not Recovered/Not Resolved]
